FAERS Safety Report 4939933-6 (Version None)
Quarter: 2006Q1

REPORT INFORMATION
  Report Type: 
  Country: None (occurrence: None)
  Receive Date: 20060310
  Receipt Date: 20060301
  Transmission Date: 20060701
  Serious: Yes (Other)
  Sender: FDA-Public Use
  Company Number: JP-GLAXOSMITHKLINE-B0414154A

PATIENT
  Age: 33 Year
  Sex: Male

DRUGS (4)
  1. COMBIVIR [Suspect]
     Indication: HIV INFECTION
     Dosage: 2TAB PER DAY
     Route: 048
     Dates: start: 20040423
  2. STOCRIN [Suspect]
     Indication: HIV INFECTION
     Dosage: 600MG PER DAY
     Route: 048
     Dates: start: 20040423
  3. LORAZEPAM [Concomitant]
     Indication: DEPRESSION
     Dosage: .5MG FOUR TIMES PER DAY
     Route: 048
     Dates: start: 20040716
  4. LENDORMIN [Concomitant]
     Indication: INSOMNIA
     Route: 048
     Dates: start: 20040716

REACTIONS (4)
  - ANAEMIA [None]
  - CYTOMEGALOVIRUS ENTEROCOLITIS [None]
  - DRUG ERUPTION [None]
  - RETINITIS [None]
